FAERS Safety Report 5747171-2 (Version None)
Quarter: 2008Q2

REPORT INFORMATION
  Report Type: 
  Country: None (occurrence: None)
  Receive Date: 20080520
  Receipt Date: 20080502
  Transmission Date: 20081010
  Serious: Yes (Other)
  Sender: FDA-Public Use
  Company Number: TPA2008A00451

PATIENT
  Age: 55 Year
  Sex: Female
  Weight: 63.5036 kg

DRUGS (8)
  1. ROZEREM [Suspect]
     Indication: INSOMNIA RELATED TO ANOTHER MENTAL CONDITION
     Dosage: 8 MG, QHS, PER ORAL, 16 MG, QHS, PER ORAL
     Route: 048
     Dates: start: 20080101, end: 20080101
  2. ROZEREM [Suspect]
     Indication: INSOMNIA RELATED TO ANOTHER MENTAL CONDITION
     Dosage: 8 MG, QHS, PER ORAL, 16 MG, QHS, PER ORAL
     Route: 048
     Dates: start: 20080101
  3. XANAX [Suspect]
     Indication: ANXIETY
     Dosage: 2 MG, 3 IN 1 D, PER ORAL
     Route: 048
     Dates: start: 20070502
  4. SYNTHROID [Concomitant]
  5. LAMICTAL [Concomitant]
  6. TOPAMAX [Concomitant]
  7. COGENTIN [Concomitant]
  8. MERIDIA [Concomitant]

REACTIONS (3)
  - DRUG EFFECT DECREASED [None]
  - INCONTINENCE [None]
  - OVERDOSE [None]
